FAERS Safety Report 20059636 (Version 1)
Quarter: 2021Q4

REPORT INFORMATION
  Report Type: Report from Study
  Country: US (occurrence: US)
  Receive Date: 20211111
  Receipt Date: 20211111
  Transmission Date: 20220303
  Serious: No
  Sender: FDA-Public Use
  Company Number: US-SUNOVION-2021SUN004253

PATIENT
  Age: 75 Year
  Sex: Female

DRUGS (1)
  1. KYNMOBI [Suspect]
     Active Substance: APOMORPHINE HYDROCHLORIDE
     Dosage: 20 MG
     Route: 060
     Dates: start: 20211102

REACTIONS (5)
  - Limb discomfort [Unknown]
  - Gait inability [Unknown]
  - Dysstasia [Unknown]
  - Dizziness [Unknown]
  - Somnolence [Unknown]

NARRATIVE: CASE EVENT DATE: 20211104
